FAERS Safety Report 5739228-7 (Version None)
Quarter: 2008Q2

REPORT INFORMATION
  Report Type: 
  Country: None (occurrence: None)
  Receive Date: 20080515
  Receipt Date: 20080430
  Transmission Date: 20081010
  Serious: Yes (Death)
  Sender: FDA-Public Use
  Company Number: FR-ROCHE-561966

PATIENT
  Sex: Male
  Weight: 43 kg

DRUGS (22)
  1. ZENAPAX [Suspect]
     Indication: GRAFT VERSUS HOST DISEASE
     Route: 065
     Dates: start: 20080107
  2. ZENAPAX [Suspect]
     Route: 065
  3. CELLCEPT [Suspect]
     Indication: BONE MARROW TRANSPLANT
     Route: 065
  4. SANDIMMUNE [Suspect]
     Indication: BONE MARROW TRANSPLANT
     Route: 065
  5. SOLU-MEDROL [Suspect]
     Indication: BONE MARROW TRANSPLANT
     Route: 065
  6. SOLU-MEDROL [Suspect]
     Route: 065
  7. LOXEN [Concomitant]
  8. PLITICAN [Concomitant]
  9. VANCOCIN HCL [Concomitant]
  10. FORTUM [Concomitant]
  11. CANCIDAS [Concomitant]
  12. ZOVIRAX [Concomitant]
  13. OMEPRAZOLE [Concomitant]
  14. ACETAMINOPHEN [Concomitant]
  15. VITAMINE K [Concomitant]
  16. SPASFON [Concomitant]
  17. SPASFON [Concomitant]
  18. NUBAIN [Concomitant]
  19. FUNGIZONE [Concomitant]
  20. ATARAX [Concomitant]
  21. LEXOMIL [Concomitant]
  22. TIORFAN [Concomitant]
     Route: 048
     Dates: end: 20080108

REACTIONS (3)
  - ACUTE PULMONARY OEDEMA [None]
  - ACUTE RESPIRATORY DISTRESS SYNDROME [None]
  - TOXOPLASMOSIS [None]
